FAERS Safety Report 7075460-0 (Version None)
Quarter: 2010Q4

REPORT INFORMATION
  Report Type: 
  Country: None (occurrence: None)
  Receive Date: 20101030
  Receipt Date: 20100915
  Transmission Date: 20110411
  Serious: Yes (Other)
  Sender: FDA-Public Use
  Company Number: US-WYE-H17376610

PATIENT
  Sex: Female
  Weight: 59.93 kg

DRUGS (5)
  1. PRISTIQ [Suspect]
     Indication: DEPRESSION
     Dates: start: 20090101
  2. CRESTOR [Suspect]
     Indication: HYPERCHOLESTEROLAEMIA
     Dosage: ^50 MG^ DAILY
     Dates: start: 20100101
  3. DOXAZOSIN MESYLATE [Suspect]
     Indication: HYPERTENSION
     Dosage: UNKNOWN
  4. HYDROCHLOROTHIAZIDE [Concomitant]
     Indication: HYPERTENSION
     Dosage: UNKNOWN
  5. VERAPAMIL [Suspect]
     Indication: HYPERTENSION
     Dosage: UNKNOWN

REACTIONS (16)
  - ALANINE AMINOTRANSFERASE INCREASED [None]
  - ASPARTATE AMINOTRANSFERASE INCREASED [None]
  - BLOOD CHOLESTEROL INCREASED [None]
  - CONDITION AGGRAVATED [None]
  - FATIGUE [None]
  - FLUID RETENTION [None]
  - HOT FLUSH [None]
  - HYPERHIDROSIS [None]
  - HYPERTENSION [None]
  - HYPOAESTHESIA [None]
  - LOW DENSITY LIPOPROTEIN INCREASED [None]
  - MIDDLE INSOMNIA [None]
  - MUSCULOSKELETAL STIFFNESS [None]
  - MYALGIA [None]
  - OEDEMA [None]
  - WEIGHT INCREASED [None]
